FAERS Safety Report 9502108 (Version 2)
Quarter: 2013Q3

REPORT INFORMATION
  Report Type: Spontaneous
  Country: US (occurrence: US)
  Receive Date: 20130905
  Receipt Date: 20130905
  Transmission Date: 20140515
  Serious: Yes (Hospitalization, Other)
  Sender: FDA-Public Use
  Company Number: US-009507513-1111USA02483

PATIENT
  Sex: Female
  Weight: 74.84 kg

DRUGS (4)
  1. FOSAMAX [Suspect]
     Indication: OSTEOPOROSIS
     Route: 048
     Dates: start: 2004
  2. FOSAMAX [Suspect]
     Dosage: 35 MG, QW
     Route: 048
     Dates: start: 20041014
  3. FOSAMAX [Suspect]
     Dosage: 5 MG, QD
     Route: 048
     Dates: end: 20041013
  4. FOSAMAX [Suspect]
     Dosage: 70 MG, QW
     Dates: end: 201001

REACTIONS (41)
  - Osteomyelitis [Unknown]
  - Cystocele [Unknown]
  - Chest pain [Unknown]
  - Enterocele [Unknown]
  - Rectocele [Unknown]
  - Squamous cell carcinoma of skin [Unknown]
  - Squamous cell carcinoma of skin [Unknown]
  - Myocardial infarction [Unknown]
  - Osteonecrosis of jaw [Recovered/Resolved]
  - Oral infection [Unknown]
  - Dental caries [Unknown]
  - Tooth disorder [Unknown]
  - Osteoporosis [Unknown]
  - Osteopenia [Unknown]
  - Hyperaldosteronism [Unknown]
  - Hypercholesterolaemia [Unknown]
  - Cataract [Unknown]
  - Hyperadrenalism [Unknown]
  - Hypokalaemia [Unknown]
  - Exostosis of jaw [Unknown]
  - Osteoarthritis [Unknown]
  - Glucose tolerance impaired [Unknown]
  - Hyperlipidaemia [Unknown]
  - Cystitis [Unknown]
  - Cardiac disorder [Unknown]
  - Intraductal papilloma of breast [Unknown]
  - Urinary tract disorder [Unknown]
  - Fibrocystic breast disease [Unknown]
  - Breast calcifications [Unknown]
  - Drug intolerance [Unknown]
  - Blood pressure increased [Unknown]
  - Carotid bruit [Unknown]
  - Angina pectoris [Unknown]
  - Myocardial ischaemia [Unknown]
  - Hypothyroidism [Unknown]
  - Drug intolerance [Unknown]
  - Dizziness [Unknown]
  - Flatulence [Unknown]
  - Abdominal pain upper [Unknown]
  - Headache [Unknown]
  - Vomiting [Unknown]
